FAERS Safety Report 13275461 (Version 7)
Quarter: 2018Q1

REPORT INFORMATION
  Report Type: Spontaneous
  Country: US (occurrence: US)
  Receive Date: 20170228
  Receipt Date: 20180328
  Transmission Date: 20180508
  Serious: Yes (Other)
  Sender: FDA-Public Use
  Company Number: PHEH2017US005986

PATIENT
  Sex: Female

DRUGS (2)
  1. ONDANSETRON HYDROCHLORIDE. [Suspect]
     Active Substance: ONDANSETRON HYDROCHLORIDE
     Indication: VOMITING IN PREGNANCY
     Dosage: 4 MG, PRN
     Route: 065
     Dates: start: 20131101, end: 201312
  2. ZOFRAN [Suspect]
     Active Substance: ONDANSETRON HYDROCHLORIDE
     Indication: PRODUCT USED FOR UNKNOWN INDICATION
     Route: 048

REACTIONS (13)
  - Injury [Unknown]
  - Generalised oedema [Unknown]
  - Maternal exposure during pregnancy [Unknown]
  - Proteinuria [Unknown]
  - Alopecia [Unknown]
  - Lip swelling [Unknown]
  - Product use in unapproved indication [Unknown]
  - Emotional distress [Unknown]
  - Pre-eclampsia [Unknown]
  - Urine output decreased [Unknown]
  - Depression [Unknown]
  - Nephropathy [Unknown]
  - Headache [Unknown]
